FAERS Safety Report 24381816 (Version 1)
Quarter: 2024Q4

REPORT INFORMATION
  Report Type: Report from Study
  Country: US (occurrence: US)
  Receive Date: 20241001
  Receipt Date: 20241001
  Transmission Date: 20250114
  Serious: Yes (Death)
  Sender: JOHNSON AND JOHNSON
  Company Number: US-JNJFOC-20240960347

PATIENT
  Age: 57 Year
  Sex: Male

DRUGS (2)
  1. CILTACABTAGENE AUTOLEUCEL [Suspect]
     Active Substance: CILTACABTAGENE AUTOLEUCEL
     Indication: Plasma cell myeloma
     Dosage: 54.32 X10^6 TOTAL CELLS
     Route: 042
     Dates: start: 2023
  2. CILTACABTAGENE AUTOLEUCEL [Suspect]
     Active Substance: CILTACABTAGENE AUTOLEUCEL
     Indication: Plasma cell myeloma

REACTIONS (5)
  - Pseudomonal bacteraemia [Fatal]
  - Bacterial infection [Fatal]
  - Fungal infection [Fatal]
  - Immune effector cell-associated HLH-like syndrome [Fatal]
  - Multiple organ dysfunction syndrome [Fatal]
